FAERS Safety Report 8737472 (Version 2)
Quarter: 2013Q3

REPORT INFORMATION
  Report Type: Spontaneous
  Country: GB (occurrence: GB)
  Receive Date: 20120822
  Receipt Date: 20130923
  Transmission Date: 20140515
  Serious: Yes (Hospitalization)
  Sender: FDA-Public Use
  Company Number: GB-MERCK-1208GBR002068

PATIENT
  Sex: 0

DRUGS (1)
  1. SINEMET 10MG/100MG TABLETS [Suspect]
     Dosage: UNK
     Route: 048

REACTIONS (2)
  - Gallbladder disorder [Unknown]
  - Wrong technique in drug usage process [Unknown]
